FAERS Safety Report 8554438-1 (Version None)
Quarter: 2012Q3

REPORT INFORMATION
  Report Type: 
  Country: None (occurrence: None)
  Receive Date: 20120731
  Receipt Date: 20120723
  Transmission Date: 20120928
  Serious: Yes (Disabling, Other)
  Sender: FDA-Public Use
  Company Number: US-009507513-1207USA010614

PATIENT

DRUGS (36)
  1. TOPROL-XL [Suspect]
  2. OMEGA-3 MARINE TRIGLYCERIDES [Concomitant]
  3. CLOZAPINE [Concomitant]
  4. ARTIFICIAL TEARS (HYPROMELLOSE) [Concomitant]
  5. ZOCOR [Suspect]
     Route: 048
  6. ZETIA [Suspect]
     Route: 048
  7. TRAMADOL HYDROCHLORIDE [Suspect]
  8. LIPITOR [Suspect]
  9. DIAZEPAM [Concomitant]
  10. PILOCARPINE [Concomitant]
  11. LANTUS [Concomitant]
     Dosage: 12 DF, UNK
  12. VICODIN [Concomitant]
  13. PROSCAR [Suspect]
  14. PLAVIX [Suspect]
  15. PROZAC [Suspect]
  16. CYCLOSPORINE [Suspect]
  17. OXYCODONE HCL [Concomitant]
  18. LOTRIMIN AF [Suspect]
  19. COREG [Suspect]
  20. LUMIGAN [Concomitant]
  21. FUROSEMIDE [Concomitant]
  22. DIGOXIN [Concomitant]
  23. ASPIRIN [Concomitant]
  24. REGLAN [Suspect]
  25. ALPRAZOLAM [Suspect]
  26. BILBERRY [Concomitant]
  27. TIMOLOL MALEATE [Concomitant]
  28. IBUPROFEN (ADVIL) [Suspect]
  29. ALLOPURINOL [Concomitant]
  30. LOSARTAN POTASSIUM [Concomitant]
  31. LUVOX [Suspect]
  32. PRAVASTATIN SODIUM [Concomitant]
  33. POTASSIUM CHLORIDE [Concomitant]
  34. METFORMIN HYDROCHLORIDE [Suspect]
  35. XALATAN [Suspect]
  36. FOLIC ACID [Concomitant]

REACTIONS (14)
  - SLEEP DISORDER [None]
  - FATIGUE [None]
  - DRUG HYPERSENSITIVITY [None]
  - MYALGIA [None]
  - CONSTIPATION [None]
  - ABASIA [None]
  - BACK PAIN [None]
  - BLOOD GLUCOSE INCREASED [None]
  - ASTHENIA [None]
  - NAUSEA [None]
  - DYSPNOEA [None]
  - ARTHROPATHY [None]
  - VOMITING [None]
  - CHEST DISCOMFORT [None]
